FAERS Safety Report 7462619-3 (Version None)
Quarter: 2011Q1

REPORT INFORMATION
  Report Type: 
  Country: None (occurrence: None)
  Receive Date: 20110302
  Receipt Date: 20101129
  Transmission Date: 20110831
  Serious: Yes (Disabling)
  Sender: FDA-Public Use
  Company Number: 163-21880-10071096

PATIENT
  Age: 63 Year
  Sex: Male

DRUGS (3)
  1. REVLIMID [Suspect]
  2. ATENOLOL [Concomitant]
  3. REVLIMID [Suspect]
     Indication: MULTIPLE MYELOMA
     Dosage: 10 MG, DAILY X 21 DAYS, PO
     Route: 048
     Dates: start: 20100607

REACTIONS (5)
  - MUSCLE SPASMS [None]
  - HEART RATE INCREASED [None]
  - DRY SKIN [None]
  - RASH [None]
  - BLOOD PRESSURE INCREASED [None]
